FAERS Safety Report 5408154-5 (Version None)
Quarter: 2007Q3

REPORT INFORMATION
  Report Type: 
  Country: None (occurrence: None)
  Receive Date: 20070806
  Receipt Date: 20070726
  Transmission Date: 20080115
  Serious: Yes (Hospitalization)
  Sender: FDA-Public Use
  Company Number: 2007-00726

PATIENT
  Age: 71 Year
  Sex: Female
  Weight: 52 kg

DRUGS (2)
  1. VELCADE [Suspect]
     Indication: MULTIPLE MYELOMA
     Dosage: 1.80 MG, INTRAVENOUS
     Route: 042
     Dates: start: 20070209, end: 20070323
  2. PREDONINE (PRENISOLONE) TABLET [Concomitant]

REACTIONS (3)
  - BRONCHITIS [None]
  - HERPES VIRUS INFECTION [None]
  - PLEURAL EFFUSION [None]
